FAERS Safety Report 7565066-9 (Version None)
Quarter: 2011Q2

REPORT INFORMATION
  Report Type: 
  Country: None (occurrence: None)
  Receive Date: 20110622
  Receipt Date: 20110620
  Transmission Date: 20111010
  Serious: Yes (Other)
  Sender: FDA-Public Use
  Company Number: US-MYLANLABS-2011S1008716

PATIENT
  Age: 52 Year
  Sex: Male

DRUGS (12)
  1. LASIX [Concomitant]
  2. CAPTOPRIL [Concomitant]
  3. COUMADIN [Concomitant]
  4. LEXAPRO [Concomitant]
  5. DIGOXIN [Concomitant]
  6. CLOZAPINE [Suspect]
     Indication: PSYCHOTIC DISORDER
     Route: 048
     Dates: end: 20110503
  7. CLARITIN /00413701/ [Concomitant]
  8. POTASSIUM [Concomitant]
  9. ATIVAN [Concomitant]
  10. RISPERDAL [Concomitant]
  11. MULTI-VITAMIN [Concomitant]
  12. TENORMIN [Concomitant]

REACTIONS (2)
  - GRANULOCYTOPENIA [None]
  - LEUKOPENIA [None]
